FAERS Safety Report 21123791 (Version 10)
Quarter: 2023Q4

REPORT INFORMATION
  Report Type: Spontaneous
  Country: PE (occurrence: PE)
  Receive Date: 20220725
  Receipt Date: 20231030
  Transmission Date: 20240110
  Serious: Yes (Other)
  Sender: FDA-Public Use
  Company Number: PE-PFIZER INC-PV202200025981

PATIENT
  Age: 70 Year
  Sex: Female

DRUGS (1)
  1. ENBREL [Suspect]
     Active Substance: ETANERCEPT
     Indication: Product used for unknown indication
     Dosage: UNK, WEEKLY
     Route: 058

REACTIONS (21)
  - Hyperthyroidism [Recovering/Resolving]
  - Hypothyroidism [Unknown]
  - Weight decreased [Unknown]
  - Hip arthroplasty [Unknown]
  - Procedural pain [Unknown]
  - Neoplasm [Unknown]
  - Chest discomfort [Unknown]
  - Somnolence [Unknown]
  - Erythema [Unknown]
  - Feeling abnormal [Unknown]
  - Abdominal pain upper [Unknown]
  - Gait inability [Unknown]
  - Dizziness [Unknown]
  - Cardiac disorder [Unknown]
  - Tachycardia [Unknown]
  - Decreased appetite [Unknown]
  - Diarrhoea [Unknown]
  - Fatigue [Unknown]
  - Hypertension [Unknown]
  - Dyspnoea [Unknown]
  - Nasopharyngitis [Unknown]

NARRATIVE: CASE EVENT DATE: 20220601
